FAERS Safety Report 11604625 (Version 1)
Quarter: 2015Q4

REPORT INFORMATION
  Report Type: Spontaneous
  Country: US (occurrence: None)
  Receive Date: 20151006
  Receipt Date: 20151006
  Transmission Date: 20160304
  Serious: No
  Sender: FDA-Public Use
  Company Number: None

PATIENT
  Age: 91 Year
  Sex: Female
  Weight: 79.38 kg

DRUGS (13)
  1. ASPIRIN. [Concomitant]
     Active Substance: ASPIRIN
  2. DOVION [Concomitant]
  3. LASIX [Concomitant]
     Active Substance: FUROSEMIDE
  4. SPIRALACTONE [Concomitant]
  5. LEVEMIRE INSULIN [Concomitant]
  6. PRISTQ [Concomitant]
  7. DILAUDID [Suspect]
     Active Substance: HYDROMORPHONE HYDROCHLORIDE
     Dosage: 2M TWICE
  8. MORPHINE [Suspect]
     Active Substance: MORPHINE
  9. OXYCODONE HCL/ACE [Suspect]
     Active Substance: ACETAMINOPHEN\OXYCODONE HYDROCHLORIDE
     Dosage: 16 TIMES
  10. NOVOLOG [Concomitant]
     Active Substance: INSULIN ASPART
  11. POTASSIUM [Concomitant]
     Active Substance: POTASSIUM
  12. PLAVIX [Concomitant]
     Active Substance: CLOPIDOGREL BISULFATE
  13. COREG [Concomitant]
     Active Substance: CARVEDILOL

REACTIONS (27)
  - Aphasia [None]
  - Immobile [None]
  - Abdominal distension [None]
  - Feeling cold [None]
  - Pain [None]
  - Dysphonia [None]
  - Product use issue [None]
  - Feeding disorder [None]
  - Accidental overdose [None]
  - Abdominal pain upper [None]
  - Dry mouth [None]
  - Abdominal rigidity [None]
  - Chills [None]
  - Confusional state [None]
  - Disorientation [None]
  - Insomnia [None]
  - Urinary retention [None]
  - Hearing impaired [None]
  - Eye movement disorder [None]
  - Visual impairment [None]
  - Pruritus [None]
  - Hallucination, visual [None]
  - Crying [None]
  - Hypotension [None]
  - Agitation [None]
  - Constipation [None]
  - Fall [None]

NARRATIVE: CASE EVENT DATE: 20150427
